FAERS Safety Report 6094045-6 (Version None)
Quarter: 2009Q1

REPORT INFORMATION
  Report Type: 
  Country: None (occurrence: None)
  Receive Date: 20090224
  Receipt Date: 20090224
  Transmission Date: 20090719
  Serious: Yes (Other)
  Sender: FDA-Public Use
  Company Number: None

PATIENT
  Age: 7 Year
  Sex: Female
  Weight: 23.587 kg

DRUGS (1)
  1. SINGULAIR [Suspect]
     Indication: MULTIPLE ALLERGIES
     Dosage: 4MG DAILY PO
     Route: 048
     Dates: start: 20020601, end: 20080320

REACTIONS (8)
  - ABNORMAL BEHAVIOUR [None]
  - ANGER [None]
  - FEAR [None]
  - INSOMNIA [None]
  - MIDDLE INSOMNIA [None]
  - MOOD SWINGS [None]
  - NIGHTMARE [None]
  - PERSONALITY CHANGE [None]
